FAERS Safety Report 25694419 (Version 1)
Quarter: 2025Q3

REPORT INFORMATION
  Report Type: Spontaneous
  Country: GB (occurrence: GB)
  Receive Date: 20250818
  Receipt Date: 20250818
  Transmission Date: 20251021
  Serious: Yes (Other)
  Sender: ELI LILLY AND COMPANY
  Company Number: None

PATIENT
  Age: 47 Year
  Sex: Female
  Weight: 101 kg

DRUGS (3)
  1. MOUNJARO [Suspect]
     Active Substance: TIRZEPATIDE
     Indication: Weight control
     Dosage: 2.5 MG, WEEKLY (1/W)
     Route: 065
     Dates: start: 20250503, end: 20250603
  2. MOUNJARO [Suspect]
     Active Substance: TIRZEPATIDE
     Indication: Weight control
     Route: 065
     Dates: start: 20250604
  3. OMEPRAZOLE [Concomitant]
     Active Substance: OMEPRAZOLE
     Indication: Adverse drug reaction
     Route: 048
     Dates: start: 20250512, end: 20250703

REACTIONS (6)
  - Swelling [Not Recovered/Not Resolved]
  - Chest discomfort [Unknown]
  - Dysphagia [Unknown]
  - Cough [Unknown]
  - Inappropriate schedule of product administration [Unknown]
  - Eructation [Unknown]

NARRATIVE: CASE EVENT DATE: 20250503
